FAERS Safety Report 9846540 (Version 2)
Quarter: 2014Q1

REPORT INFORMATION
  Report Type: Spontaneous
  Country: US (occurrence: US)
  Receive Date: 20140127
  Receipt Date: 20140130
  Transmission Date: 20141002
  Serious: Yes (Hospitalization)
  Sender: FDA-Public Use
  Company Number: US-GILEAD-2014-0093021

PATIENT
  Age: 78 Year
  Sex: Male

DRUGS (9)
  1. LETAIRIS [Suspect]
     Indication: PRODUCT USED FOR UNKNOWN INDICATION
     Dosage: 10 MG, QD
     Route: 065
     Dates: start: 20130328
  2. REMODULIN [Suspect]
  3. ADCIRCA [Concomitant]
  4. VICODIN [Concomitant]
  5. GABAPENTIN [Concomitant]
  6. LASIX                              /00032601/ [Concomitant]
  7. PROAIR                             /00139502/ [Concomitant]
  8. SYMBICORT [Concomitant]
  9. SPIRIVA [Concomitant]

REACTIONS (5)
  - Oedema [Recovered/Resolved]
  - Hypotension [Unknown]
  - Infusion site reaction [Not Recovered/Not Resolved]
  - Neuralgia [Unknown]
  - Dyspnoea [Recovering/Resolving]
